FAERS Safety Report 8394504-7 (Version None)
Quarter: 2012Q2

REPORT INFORMATION
  Report Type: 
  Country: None (occurrence: None)
  Receive Date: 20120530
  Receipt Date: 20120517
  Transmission Date: 20120825
  Serious: Yes (Hospitalization)
  Sender: FDA-Public Use
  Company Number: US-ELI_LILLY_AND_COMPANY-US201204005921

PATIENT
  Sex: Female

DRUGS (2)
  1. FORTEO [Suspect]
     Indication: OSTEOPOROSIS
     Dosage: 20 UG, QD
  2. FORTEO [Suspect]
     Dosage: 20 UG, QD

REACTIONS (6)
  - BACK DISORDER [None]
  - APPENDICECTOMY [None]
  - BACK PAIN [None]
  - INSOMNIA [None]
  - DECREASED APPETITE [None]
  - MUSCULOSKELETAL DISCOMFORT [None]
